FAERS Safety Report 5581974-2 (Version None)
Quarter: 2008Q1

REPORT INFORMATION
  Report Type: 
  Country: None (occurrence: None)
  Receive Date: 20080104
  Receipt Date: 20071231
  Transmission Date: 20080703
  Serious: Yes (Hospitalization)
  Sender: FDA-Public Use
  Company Number: B0501554A

PATIENT
  Age: 55 Year
  Sex: Female

DRUGS (7)
  1. CLAMOXYL [Suspect]
     Indication: SKIN INFECTION
     Dosage: 1G THREE TIMES PER DAY
     Route: 048
     Dates: start: 20070803, end: 20070809
  2. PYOSTACINE [Suspect]
     Indication: SKIN INFECTION
     Dosage: 1000MG THREE TIMES PER DAY
     Route: 048
     Dates: start: 20070726, end: 20070809
  3. MORPHINE SUL INJ [Concomitant]
     Indication: PAIN
     Dosage: 30MG TWICE PER DAY
     Route: 048
     Dates: start: 20070401
  4. TAREG [Concomitant]
     Dosage: 160MG PER DAY
     Route: 048
     Dates: start: 20070101
  5. EFFERALGAN [Concomitant]
     Indication: PAIN
     Dosage: 4G PER DAY
     Route: 048
     Dates: start: 20070101
  6. ACTISKENAN [Concomitant]
     Dosage: 10MG SEE DOSAGE TEXT
     Route: 048
     Dates: start: 20070803
  7. ATARAX [Concomitant]
     Indication: INSOMNIA
     Dosage: 25MG PER DAY
     Route: 048
     Dates: start: 20070804

REACTIONS (9)
  - ANAEMIA [None]
  - ECZEMA [None]
  - EOSINOPHILIA [None]
  - INFLAMMATION [None]
  - LYMPHOCYTIC INFILTRATION [None]
  - PRURITUS [None]
  - RASH MACULO-PAPULAR [None]
  - RASH MORBILLIFORM [None]
  - SKIN OEDEMA [None]
